FAERS Safety Report 19480958 (Version 1)
Quarter: 2021Q2

REPORT INFORMATION
  Report Type: Spontaneous
  Country: DE (occurrence: DE)
  Receive Date: 20210630
  Receipt Date: 20210630
  Transmission Date: 20210717
  Serious: Yes (Other)
  Sender: FDA-Public Use
  Company Number: DE-ASTRAZENECA-2021A564694

PATIENT
  Age: 60 Year
  Sex: Female
  Weight: 69 kg

DRUGS (1)
  1. SYMBICORT [Suspect]
     Active Substance: BUDESONIDE\FORMOTEROL FUMARATE DIHYDRATE
     Dosage: 320/9,UG
     Route: 055
     Dates: start: 201706

REACTIONS (1)
  - Skin haemorrhage [Not Recovered/Not Resolved]

NARRATIVE: CASE EVENT DATE: 20210619
